FAERS Safety Report 9595952 (Version 1)
Quarter: 2013Q4

REPORT INFORMATION
  Report Type: Spontaneous
  Country: US (occurrence: US)
  Receive Date: 20131004
  Receipt Date: 20131004
  Transmission Date: 20140711
  Serious: No
  Sender: FDA-Public Use
  Company Number: US-009507513-1310USA002140

PATIENT
  Age: 75 Year
  Sex: Male

DRUGS (3)
  1. EMEND [Suspect]
     Indication: PROPHYLAXIS OF NAUSEA AND VOMITING
     Dosage: UNK
     Route: 042
     Dates: start: 20130930, end: 20130930
  2. ALOXI [Concomitant]
     Dosage: UNKNOWN
  3. DEXAMETHASONE [Concomitant]
     Dosage: UNKNOWN

REACTIONS (1)
  - Erythema [Recovered/Resolved]
